FAERS Safety Report 6823951-7 (Version None)
Quarter: 2010Q3

REPORT INFORMATION
  Report Type: 
  Country: None (occurrence: None)
  Receive Date: 20100708
  Receipt Date: 20060926
  Transmission Date: 20110219
  Serious: No
  Sender: FDA-Public Use
  Company Number: US-PFIZER INC-2006117653

PATIENT
  Age: 66 Year
  Sex: Female

DRUGS (3)
  1. CHANTIX [Suspect]
     Indication: SMOKING CESSATION THERAPY
     Dates: start: 20060901, end: 20060925
  2. TOPROL-XL [Concomitant]
     Indication: HYPERTENSION
  3. DYAZIDE [Concomitant]
     Indication: HYPERTENSION

REACTIONS (1)
  - BLISTER [None]
